FAERS Safety Report 17496019 (Version 2)
Quarter: 2021Q1

REPORT INFORMATION
  Report Type: Other
  Country: US (occurrence: US)
  Receive Date: 20200304
  Receipt Date: 20210108
  Transmission Date: 20210419
  Serious: Yes (Other)
  Sender: FDA-Public Use
  Company Number: US-ROCHE-2557879

PATIENT

DRUGS (5)
  1. RITONAVIR. [Suspect]
     Active Substance: RITONAVIR
     Indication: HEPATITIS C VIRUS TEST POSITIVE
     Route: 065
  2. DASABUVIR [Suspect]
     Active Substance: DASABUVIR
     Indication: HEPATITIS C VIRUS TEST POSITIVE
     Route: 065
  3. RIBAVIRIN. [Suspect]
     Active Substance: RIBAVIRIN
     Indication: HEPATITIS C VIRUS TEST POSITIVE
     Dosage: 1000 MG FOR PATIENTS MORE THAN 75 KG OR 1200 MG FOR PATIENTS }/= 75 KG; DIVIDED TWICE DAILY FOR 12 O
     Route: 065
  4. PARITAPREVIR [Suspect]
     Active Substance: PARITAPREVIR
     Indication: HEPATITIS C VIRUS TEST POSITIVE
     Route: 065
  5. OMBITASVIR [Suspect]
     Active Substance: OMBITASVIR
     Indication: HEPATITIS C VIRUS TEST POSITIVE
     Route: 065

REACTIONS (14)
  - Myocardial infarction [Unknown]
  - Cholangitis [Unknown]
  - Periodontal disease [Unknown]
  - Tooth extraction [Unknown]
  - Mental status changes [Unknown]
  - Pneumonia [Unknown]
  - Schizophrenia [Unknown]
  - Gastroenteritis viral [Unknown]
  - Depressive symptom [Unknown]
  - Cholecystitis [Unknown]
  - Pancreatitis [Unknown]
  - Chronic obstructive pulmonary disease [Unknown]
  - Drug interaction [Unknown]
  - Appendicitis [Unknown]
